FAERS Safety Report 7594529-5 (Version None)
Quarter: 2011Q2

REPORT INFORMATION
  Report Type: 
  Country: None (occurrence: None)
  Receive Date: 20110628
  Receipt Date: 20110620
  Transmission Date: 20111010
  Serious: Yes (Death)
  Sender: FDA-Public Use
  Company Number: 2011-2008

PATIENT
  Age: 76 Year
  Sex: Female
  Weight: 44 kg

DRUGS (16)
  1. VITAMIN D [Concomitant]
  2. CYMBALTA [Concomitant]
  3. ASPIRIN [Concomitant]
  4. KADIAN [Concomitant]
  5. FUROSEMIDE [Concomitant]
  6. VICODIN [Concomitant]
  7. CLONIDINE HCL [Concomitant]
  8. ENALAPRIL MALEATE [Concomitant]
  9. LEVOTHYROXINE SODIUM [Concomitant]
  10. SOMATULINE DEPOT [Suspect]
     Indication: ACROMEGALY
     Dosage: 60 MG (60 MG, 1 IN 28 D), SUBCUTANEOUS
     Route: 058
     Dates: start: 20110201
  11. GLYCOLAX (MACROGOL) [Concomitant]
  12. LIPITOR [Concomitant]
  13. AVINZA OPIOID (MORPHINE SULFATE) [Concomitant]
  14. METOPROLOL SUCCINATE [Concomitant]
  15. MEGACE [Concomitant]
  16. FLUTICASONE PROPIONATE [Concomitant]

REACTIONS (11)
  - FALL [None]
  - BLOOD UREA INCREASED [None]
  - CEREBRAL CALCIFICATION [None]
  - CEREBRAL ISCHAEMIA [None]
  - GENERAL PHYSICAL HEALTH DETERIORATION [None]
  - BLOOD POTASSIUM INCREASED [None]
  - MENINGIOMA [None]
  - BLOOD CREATININE INCREASED [None]
  - BLOOD SODIUM INCREASED [None]
  - CARDIO-RESPIRATORY ARREST [None]
  - LOSS OF CONSCIOUSNESS [None]
